FAERS Safety Report 9288978 (Version 1)
Quarter: 2013Q2

REPORT INFORMATION
  Report Type: Spontaneous
  Country: LB (occurrence: LB)
  Receive Date: 20130514
  Receipt Date: 20130514
  Transmission Date: 20140414
  Serious: Yes (Other)
  Sender: FDA-Public Use
  Company Number: LB-ABBOTT-13P-093-1087896-00

PATIENT
  Age: 16 Year
  Sex: Male

DRUGS (2)
  1. HUMIRA [Suspect]
     Indication: CROHN^S DISEASE
     Dosage: LOADING DOSE
  2. HUMIRA [Suspect]
     Route: 058

REACTIONS (7)
  - Ulcer [Recovered/Resolved]
  - Crohn^s disease [Recovered/Resolved]
  - Oedema [Recovered/Resolved]
  - C-reactive protein increased [Recovered/Resolved]
  - Pyrexia [Recovered/Resolved]
  - Fistula [Unknown]
  - Drug ineffective [Unknown]
